FAERS Safety Report 19793932 (Version 4)
Quarter: 2022Q2

REPORT INFORMATION
  Report Type: Report from Study
  Country: US (occurrence: US)
  Receive Date: 20210906
  Receipt Date: 20220413
  Transmission Date: 20220720
  Serious: Yes (Other)
  Sender: FDA-Public Use
  Company Number: US-SANOFI-00750644

PATIENT
  Age: 75 Year
  Sex: Female

DRUGS (2)
  1. DUPILUMAB [Suspect]
     Active Substance: DUPILUMAB
     Indication: Dermatitis atopic
     Dosage: 600 MG, 1X
     Route: 058
     Dates: start: 20210513, end: 20210513
  2. DUPILUMAB [Suspect]
     Active Substance: DUPILUMAB
     Dosage: 300 MG, QOW
     Route: 058
     Dates: start: 2021

REACTIONS (11)
  - Cardiac flutter [Unknown]
  - Hypopnoea [Unknown]
  - Fatigue [Unknown]
  - Oedema peripheral [Recovered/Resolved]
  - Eczema [Unknown]
  - Hypertension [Recovering/Resolving]
  - Peripheral swelling [Unknown]
  - Skin tightness [Unknown]
  - Dry skin [Not Recovered/Not Resolved]
  - Off label use [Unknown]
  - Product use issue [Unknown]

NARRATIVE: CASE EVENT DATE: 20210101
